FAERS Safety Report 8606830-4 (Version None)
Quarter: 2012Q3

REPORT INFORMATION
  Report Type: 
  Country: None (occurrence: None)
  Receive Date: 20120820
  Receipt Date: 20120815
  Transmission Date: 20120928
  Serious: Yes (Death, Life-Threatening, Hospitalization)
  Sender: FDA-Public Use
  Company Number: CO-ROCHE-1095268

PATIENT
  Age: 47 Year
  Sex: Female
  Weight: 59.8 kg

DRUGS (10)
  1. OMEPRAZOLE [Concomitant]
     Route: 048
     Dates: start: 20110329
  2. DICLOFENAC [Concomitant]
     Indication: RHEUMATOID ARTHRITIS
     Route: 048
     Dates: start: 20100601, end: 20110328
  3. FOLIC ACID [Concomitant]
     Route: 048
     Dates: start: 20110329
  4. CHLOROQUINE [Concomitant]
     Indication: RHEUMATOID ARTHRITIS
     Route: 048
     Dates: start: 20110329
  5. ACETAMINOPHEN [Concomitant]
     Route: 048
     Dates: start: 20120626, end: 20120630
  6. PREDNISOLONE [Concomitant]
     Indication: RHEUMATOID ARTHRITIS
     Route: 048
     Dates: start: 20100601
  7. NAPROXEN [Concomitant]
     Indication: RHEUMATOID ARTHRITIS
     Route: 048
     Dates: start: 20110329
  8. ROACTEMRA [Suspect]
     Indication: RHEUMATOID ARTHRITIS
     Dosage: DATE OF LAST DOSE PRIOR TO SAE : 13/JUN/2012
     Route: 058
     Dates: start: 20120307
  9. ACTEMRA [Suspect]
     Indication: RHEUMATOID ARTHRITIS
     Dosage: DATE OF MOST RECENT DOSE PRIOR TO SAE :22/FEB/2012
     Route: 058
     Dates: start: 20110921
  10. METHOTREXATE [Concomitant]
     Indication: RHEUMATOID ARTHRITIS
     Route: 048
     Dates: start: 20110329

REACTIONS (2)
  - PNEUMONIA [None]
  - PYREXIA [None]
